FAERS Safety Report 13382519 (Version 1)
Quarter: 2017Q1

REPORT INFORMATION
  Report Type: Spontaneous
  Country: US (occurrence: US)
  Receive Date: 20170329
  Receipt Date: 20170329
  Transmission Date: 20170429
  Serious: No
  Sender: FDA-Public Use
  Company Number: PHEH2017US006618

PATIENT
  Sex: Male

DRUGS (2)
  1. KLONOPIN [Concomitant]
     Active Substance: CLONAZEPAM
     Indication: PRODUCT USED FOR UNKNOWN INDICATION
     Route: 065
  2. VALSARTAN. [Suspect]
     Active Substance: VALSARTAN
     Indication: PRODUCT USED FOR UNKNOWN INDICATION
     Route: 065

REACTIONS (9)
  - Panic disorder [Unknown]
  - Tinnitus [Unknown]
  - Palpitations [Unknown]
  - Malaise [Unknown]
  - Paraesthesia [Unknown]
  - Nausea [Unknown]
  - Anxiety [Unknown]
  - Drug hypersensitivity [Unknown]
  - Hypoaesthesia [Unknown]
